FAERS Safety Report 21860779 (Version 1)
Quarter: 2023Q1

REPORT INFORMATION
  Report Type: Spontaneous
  Country: US (occurrence: US)
  Receive Date: 20230113
  Receipt Date: 20230113
  Transmission Date: 20230417
  Serious: No
  Sender: FDA-Public Use
  Company Number: US-NOVOPROD-983661

PATIENT
  Age: 52 Year
  Sex: Female

DRUGS (1)
  1. WEGOVY [Suspect]
     Active Substance: SEMAGLUTIDE
     Indication: Weight control
     Dosage: 1.7 MG, QW
     Route: 058
     Dates: start: 202207

REACTIONS (5)
  - Injection site vesicles [Not Recovered/Not Resolved]
  - Injection site bruising [Recovering/Resolving]
  - Nausea [Recovered/Resolved]
  - Decreased appetite [Unknown]
  - Device malfunction [Unknown]

NARRATIVE: CASE EVENT DATE: 20220925
